FAERS Safety Report 19654845 (Version 1)
Quarter: 2021Q3

REPORT INFORMATION
  Report Type: Spontaneous
  Country: US (occurrence: US)
  Receive Date: 20210802
  Receipt Date: 20210802
  Transmission Date: 20211014
  Serious: No
  Sender: FDA-Public Use
  Company Number: None

PATIENT
  Age: 64 Year
  Sex: Male

DRUGS (1)
  1. ENBREL [Suspect]
     Active Substance: ETANERCEPT
     Route: 058

REACTIONS (4)
  - Oxygen saturation decreased [None]
  - Chest pain [None]
  - SARS-CoV-2 antibody test positive [None]
  - Therapy interrupted [None]

NARRATIVE: CASE EVENT DATE: 20210802
